FAERS Safety Report 8495578-5 (Version None)
Quarter: 2012Q3

REPORT INFORMATION
  Report Type: 
  Country: None (occurrence: None)
  Receive Date: 20120709
  Receipt Date: 20120705
  Transmission Date: 20120928
  Serious: No
  Sender: FDA-Public Use
  Company Number: US-TEVA-344957USA

PATIENT
  Age: 18 Year
  Sex: Female
  Weight: 58.112 kg

DRUGS (5)
  1. PLAN B ONE-STEP [Suspect]
     Indication: POST COITAL CONTRACEPTION
     Dosage: 1.5 MILLIGRAM;
     Route: 048
     Dates: start: 20120619, end: 20120619
  2. RECLIPSEN [Concomitant]
     Indication: ORAL CONTRACEPTION
  3. ABILIFY [Concomitant]
     Indication: DEPRESSION
  4. LEXAPRO [Concomitant]
     Indication: DEPRESSION
  5. KLONOPIN [Concomitant]
     Indication: ANXIETY

REACTIONS (1)
  - MENSTRUATION IRREGULAR [None]
